FAERS Safety Report 9023478 (Version 1)
Quarter: 2013Q1

REPORT INFORMATION
  Report Type: Spontaneous
  Country: US (occurrence: US)
  Receive Date: 20130121
  Receipt Date: 20130121
  Transmission Date: 20140127
  Serious: No
  Sender: FDA-Public Use
  Company Number: US-OPTIMER PHARMACEUTICALS, INC.-20120122

PATIENT
  Age: 48 None
  Sex: Female
  Weight: 67.12 kg

DRUGS (8)
  1. DIFICID [Suspect]
     Indication: CLOSTRIDIAL INFECTION
     Dosage: 200 MG, BID
     Route: 048
     Dates: start: 20120118, end: 20120120
  2. DIFICID [Suspect]
     Dosage: 200 MG, BID
     Route: 048
     Dates: start: 20120123, end: 20120129
  3. PREMARIN [Concomitant]
     Dosage: 0.625 MG, QD
     Route: 048
     Dates: start: 2008
  4. SYNTHROID [Concomitant]
     Indication: HYPOTHYROIDISM
     Dosage: 0.112 MG, QD
     Route: 048
     Dates: start: 2007
  5. PREVACID [Concomitant]
     Dosage: 40 MG, BID
     Route: 048
     Dates: start: 2012
  6. LORTAB [Concomitant]
     Indication: PAIN
     Dosage: 10 MG/500 MG, PRN
     Route: 048
     Dates: start: 2009
  7. MECLIZINE [Concomitant]
     Indication: NAUSEA
     Dosage: 30 MG, PRN
     Route: 048
     Dates: start: 2010
  8. NEURONTIN [Concomitant]
     Dosage: 400 MG, TID
     Route: 048
     Dates: start: 2009

REACTIONS (7)
  - Clostridium difficile infection [Not Recovered/Not Resolved]
  - Disease recurrence [Not Recovered/Not Resolved]
  - Diarrhoea [Not Recovered/Not Resolved]
  - Vomiting [Not Recovered/Not Resolved]
  - Haematochezia [Not Recovered/Not Resolved]
  - Ear infection [Unknown]
  - Drug dose omission [Unknown]
